FAERS Safety Report 7235061 (Version 3)
Quarter: 2013Q1

REPORT INFORMATION
  Report Type: Report from Study
  Country: LB (occurrence: LB)
  Receive Date: 20091231
  Receipt Date: 20130201
  Transmission Date: 20140127
  Serious: Yes (Other)
  Sender: FDA-Public Use
  Company Number: PHHO2009LB16109

PATIENT
  Sex: Male
  Weight: 100 kg

DRUGS (1)
  1. ZOLEDRONATE [Suspect]
     Indication: PROSTATE CANCER
     Dosage: 4 MG, QMO
     Route: 042
     Dates: start: 20090716, end: 20091103

REACTIONS (6)
  - Hypocalcaemia [Not Recovered/Not Resolved]
  - Hypophosphataemia [Not Recovered/Not Resolved]
  - Malnutrition [Recovering/Resolving]
  - Hypoalbuminaemia [Recovering/Resolving]
  - Vitamin D decreased [Recovering/Resolving]
  - Prostatic specific antigen increased [Recovered/Resolved]
